FAERS Safety Report 6905945-6 (Version None)
Quarter: 2010Q3

REPORT INFORMATION
  Report Type: 
  Country: None (occurrence: None)
  Receive Date: 20100804
  Receipt Date: 20100726
  Transmission Date: 20110219
  Serious: Yes (Hospitalization)
  Sender: FDA-Public Use
  Company Number: JP-ROCHE-718374

PATIENT
  Sex: Female

DRUGS (18)
  1. BEVACIZUMAB [Suspect]
     Indication: COLON CANCER
     Route: 041
     Dates: start: 20100507
  2. IRINOTECAN HYDROCHLORIDE [Suspect]
     Indication: COLON CANCER
     Dosage: DRUG: CAMPTO (IRINOTECAN HYDROCHLORIDE)
     Route: 041
     Dates: start: 20100507, end: 20100625
  3. IRINOTECAN HYDROCHLORIDE [Suspect]
     Route: 041
     Dates: start: 20100716
  4. FLUOROURACIL [Suspect]
     Indication: COLON CANCER
     Route: 040
     Dates: start: 20100507, end: 20100625
  5. FLUOROURACIL [Suspect]
     Route: 040
     Dates: start: 20100507, end: 20100601
  6. FLUOROURACIL [Suspect]
     Route: 040
     Dates: start: 20100716
  7. FLUOROURACIL [Suspect]
     Route: 040
     Dates: start: 20100716
  8. LEUCOVORIN CALCIUM [Concomitant]
     Route: 041
     Dates: start: 20100507
  9. DECADRON [Concomitant]
     Dosage: ROUTE: INTRAVENOUS (NOS)
     Route: 041
     Dates: start: 20100716
  10. GRANISETRON HCL [Concomitant]
     Dosage: ROUTE: INTRAVENOUS (NOS)
     Route: 042
     Dates: start: 20100716
  11. OXYCONTIN [Concomitant]
     Route: 048
  12. OXINORM [Concomitant]
     Dosage: DOSE FORM: POWDERED MEDICINE, NOTE: TAKEN AS NEEDED
     Route: 048
  13. LOXONIN [Concomitant]
     Route: 048
  14. GASTER D [Concomitant]
     Route: 048
  15. BLOPRESS [Concomitant]
     Route: 048
     Dates: start: 20100507
  16. CONSTAN [Concomitant]
     Dosage: NOTE: TAKEN AS NEEDED
     Route: 048
  17. MAGNESIUM HYDROXIDE TAB [Concomitant]
     Dosage: DRUG: MILMAG (MAGNESIUM HYDROXIDE)
     Route: 048
  18. PURSENNID [Concomitant]
     Dosage: NOTE: TAKEN AS NEEDED
     Route: 048

REACTIONS (5)
  - CONSTIPATION [None]
  - DIARRHOEA [None]
  - ENTEROCOLITIS [None]
  - HYPERHIDROSIS [None]
  - MALAISE [None]
